FAERS Safety Report 15370415 (Version 2)
Quarter: 2018Q3

REPORT INFORMATION
  Report Type: Spontaneous
  Country: NL (occurrence: NL)
  Receive Date: 20180911
  Receipt Date: 20180925
  Transmission Date: 20181010
  Serious: Yes (Hospitalization)
  Sender: FDA-Public Use
  Company Number: NL-ACTELION-A-CH2018-178311

PATIENT
  Age: 37 Year
  Sex: Female

DRUGS (2)
  1. VELETRI [Suspect]
     Active Substance: EPOPROSTENOL
     Indication: PULMONARY ARTERIAL HYPERTENSION
     Dosage: /24U
     Route: 042
  2. OPSUMIT [Concomitant]
     Active Substance: MACITENTAN
     Indication: PULMONARY ARTERIAL HYPERTENSION
     Dosage: 10 MG, QD
     Route: 048
     Dates: start: 20150121

REACTIONS (7)
  - Musculoskeletal discomfort [Recovered/Resolved]
  - Skin swelling [Recovered/Resolved]
  - Foreign body [Unknown]
  - Device issue [Unknown]
  - Erythema [Recovered/Resolved]
  - Device breakage [Unknown]
  - Catheter removal [Unknown]
